FAERS Safety Report 15818917 (Version 1)
Quarter: 2019Q1

REPORT INFORMATION
  Report Type: Spontaneous
  Country: US (occurrence: US)
  Receive Date: 20190114
  Receipt Date: 20190114
  Transmission Date: 20190417
  Serious: No
  Sender: FDA-Public Use
  Company Number: US-009507513-1901USA001573

PATIENT
  Age: 29 Year
  Sex: Female
  Weight: 110.2 kg

DRUGS (1)
  1. NEXPLANON [Suspect]
     Active Substance: ETONOGESTREL
     Dosage: 1 DOSAGE FORM, IN EVERY 3 YEARS, ON LEFT ARM
     Route: 059
     Dates: start: 20160121, end: 20190104

REACTIONS (2)
  - No adverse event [Unknown]
  - Device breakage [Recovered/Resolved]
